FAERS Safety Report 5187616-2 (Version None)
Quarter: 2006Q4

REPORT INFORMATION
  Report Type: 
  Country: None (occurrence: None)
  Receive Date: 20061220
  Receipt Date: 20051124
  Transmission Date: 20070319
  Serious: No
  Sender: FDA-Public Use
  Company Number: CA-AMGEN-US159219

PATIENT
  Sex: Female

DRUGS (2)
  1. ENBREL [Suspect]
     Indication: RHEUMATOID ARTHRITIS
     Route: 058
     Dates: start: 20030130, end: 20050201
  2. KINERET [Suspect]
     Indication: RHEUMATOID ARTHRITIS

REACTIONS (1)
  - DRUG INEFFECTIVE [None]
